FAERS Safety Report 7060369-9 (Version None)
Quarter: 2010Q4

REPORT INFORMATION
  Report Type: 
  Country: None (occurrence: None)
  Receive Date: 20101025
  Receipt Date: 20101020
  Transmission Date: 20110411
  Serious: Yes (Other)
  Sender: FDA-Public Use
  Company Number: D0069185A

PATIENT
  Sex: Female

DRUGS (1)
  1. REVOLADE [Suspect]
     Route: 048

REACTIONS (1)
  - BONE MARROW DISORDER [None]
